FAERS Safety Report 13317931 (Version 1)
Quarter: 2017Q1

REPORT INFORMATION
  Report Type: Spontaneous
  Country: CA (occurrence: CA)
  Receive Date: 20170310
  Receipt Date: 20170310
  Transmission Date: 20170428
  Serious: Yes (Hospitalization, Other)
  Sender: FDA-Public Use
  Company Number: CA-BRISTOL-MYERS SQUIBB COMPANY-BMS-2017-020390

PATIENT
  Age: 63 Year
  Sex: Male

DRUGS (3)
  1. LURASIDONE [Interacting]
     Active Substance: LURASIDONE
     Indication: HIV INFECTION
     Dosage: 40 MG, QD
     Route: 065
     Dates: start: 201506
  2. RISPERIDONE. [Suspect]
     Active Substance: RISPERIDONE
     Indication: HIV INFECTION
     Dosage: 1 MG, QHS
     Route: 065
     Dates: start: 2013
  3. ATAZANAVIR SULFATE [Suspect]
     Active Substance: ATAZANAVIR SULFATE
     Indication: HIV INFECTION
     Dosage: 400 MG, QD
     Route: 065

REACTIONS (2)
  - Extrapyramidal disorder [Unknown]
  - Drug interaction [Unknown]
